FAERS Safety Report 15312105 (Version 1)
Quarter: 2018Q3

REPORT INFORMATION
  Report Type: Spontaneous
  Country: JP (occurrence: JP)
  Receive Date: 20180823
  Receipt Date: 20180823
  Transmission Date: 20181010
  Serious: Yes (Other)
  Sender: FDA-Public Use
  Company Number: JP-009507513-1808JPN001975J

PATIENT
  Age: 70 Year
  Sex: Male
  Weight: 45 kg

DRUGS (2)
  1. ESLAX INTRAVENOUS 25MG/2.5ML [Suspect]
     Active Substance: ROCURONIUM BROMIDE
     Dosage: 80 MG, ONCE
     Route: 042
  2. BRIDION [Concomitant]
     Active Substance: SUGAMMADEX
     Dosage: 200 MG, ONCE
     Route: 042

REACTIONS (3)
  - Dyspnoea [Unknown]
  - Continuous positive airway pressure [Unknown]
  - Laryngeal mask airway insertion [Unknown]
